FAERS Safety Report 4870636-2 (Version None)
Quarter: 2005Q4

REPORT INFORMATION
  Report Type: 
  Country: None (occurrence: None)
  Receive Date: 20051228
  Receipt Date: 20051213
  Transmission Date: 20060501
  Serious: Yes (Hospitalization)
  Sender: FDA-Public Use
  Company Number: 2005VX000828

PATIENT
  Sex: Male

DRUGS (4)
  1. MESTINON [Suspect]
  2. METOPROLOL SUCCINATE [Suspect]
  3. VALPROIC ACID [Suspect]
  4. ZALEPLON [Suspect]

REACTIONS (7)
  - ANTICHOLINERGIC SYNDROME [None]
  - INTENTIONAL SELF-INJURY [None]
  - MULTIPLE DRUG OVERDOSE [None]
  - MYDRIASIS [None]
  - RESPIRATORY FAILURE [None]
  - SUICIDAL IDEATION [None]
  - TACHYCARDIA [None]
